FAERS Safety Report 23315535 (Version 1)
Quarter: 2023Q4

REPORT INFORMATION
  Report Type: Spontaneous
  Country: US (occurrence: US)
  Receive Date: 20231219
  Receipt Date: 20231219
  Transmission Date: 20240109
  Serious: No
  Sender: FDA-Public Use
  Company Number: US-TAKEDA-2023TUS118909

PATIENT
  Sex: Female
  Weight: 68 kg

DRUGS (2)
  1. ENTYVIO [Suspect]
     Active Substance: VEDOLIZUMAB
     Indication: Product used for unknown indication
     Dosage: UNK
     Route: 042
  2. COREG [Concomitant]
     Active Substance: CARVEDILOL
     Indication: Cardiac disorder
     Dosage: UNK

REACTIONS (6)
  - Myalgia [Unknown]
  - Myalgia [Unknown]
  - Contusion [Unknown]
  - Alopecia [Unknown]
  - Gingival bleeding [Unknown]
  - Abdominal pain [Unknown]
